FAERS Safety Report 8221263-0 (Version None)
Quarter: 2012Q1

REPORT INFORMATION
  Report Type: 
  Country: None (occurrence: None)
  Receive Date: 20120320
  Receipt Date: 20120313
  Transmission Date: 20120608
  Serious: No
  Sender: FDA-Public Use
  Company Number: PHEH2012US005572

PATIENT
  Sex: Female

DRUGS (6)
  1. TOPAMAX [Concomitant]
     Indication: MIGRAINE
     Dosage: 100 MG, BID
     Route: 048
  2. DOXYCYCLINE [Concomitant]
     Dosage: 100 MG, DAILY
  3. WELLBUTRIN XL [Concomitant]
     Indication: DEPRESSION
     Dosage: 150 MG, DAILY
     Route: 048
  4. GILENYA [Suspect]
     Indication: MULTIPLE SCLEROSIS
     Dosage: 0.5 MG, QD
     Route: 048
     Dates: start: 20110602, end: 20120308
  5. PROTONIX [Concomitant]
     Indication: GASTROOESOPHAGEAL REFLUX DISEASE
     Dosage: 40 MG, DAILY
     Route: 048
  6. IBUPROFEN [Concomitant]
     Dosage: 600 MG, TID
     Route: 048

REACTIONS (2)
  - DRUG INEFFECTIVE [None]
  - OPTIC NEURITIS [None]
